FAERS Safety Report 6342440-X (Version None)
Quarter: 2009Q3

REPORT INFORMATION
  Report Type: 
  Country: None (occurrence: None)
  Receive Date: 20090908
  Receipt Date: 20090825
  Transmission Date: 20100115
  Serious: Yes (Other)
  Sender: FDA-Public Use
  Company Number: US-BAYER-200918976NA

PATIENT
  Age: 44 Year
  Sex: Female

DRUGS (9)
  1. BETASERON [Suspect]
     Indication: RELAPSING-REMITTING MULTIPLE SCLEROSIS
     Dosage: TOTAL DAILY DOSE: 8 MIU
     Route: 058
     Dates: start: 20050720, end: 20090101
  2. CRESTOR [Concomitant]
  3. EFFEXOR [Concomitant]
  4. FLEXERIL [Concomitant]
  5. LISINOPRIL [Concomitant]
  6. PROVIGIL [Concomitant]
  7. TOPAMAX [Concomitant]
  8. OMEPRAZOLE [Concomitant]
  9. TRAMADOL HCL [Concomitant]

REACTIONS (9)
  - ABDOMINAL DISTENSION [None]
  - ABDOMINAL PAIN [None]
  - HEPATIC ENZYME INCREASED [None]
  - HEPATIC STEATOSIS [None]
  - HYPOREFLEXIA [None]
  - MULTIPLE SCLEROSIS RELAPSE [None]
  - NAUSEA [None]
  - OPTIC NEURITIS [None]
  - PAIN IN EXTREMITY [None]
